FAERS Safety Report 21942935 (Version 2)
Quarter: 2023Q1

REPORT INFORMATION
  Report Type: Report from Study
  Country: JP (occurrence: None)
  Receive Date: 20230202
  Receipt Date: 20230314
  Transmission Date: 20230417
  Serious: No
  Sender: FDA-Public Use
  Company Number: 2023A023333

PATIENT
  Age: 66 Year
  Sex: Male
  Weight: 46 kg

DRUGS (5)
  1. ONDEXXYA [Suspect]
     Active Substance: ANDEXANET ALFA
     Indication: Cardiac tamponade
     Dosage: 800 MG PLUS 960 MG1760.0MG UNKNOWN
     Route: 042
     Dates: start: 20221024
  2. HEPARIN SODIUM [Concomitant]
     Active Substance: HEPARIN SODIUM
     Dosage: CONTINUOUS ADMINISTRATION
     Route: 065
     Dates: start: 20221031, end: 202211
  3. EDOXABAN TOSYLATE [Concomitant]
     Active Substance: EDOXABAN TOSYLATE
     Indication: Embolism arterial
     Route: 048
     Dates: start: 20221111
  4. EDOXABAN TOSYLATE [Concomitant]
     Active Substance: EDOXABAN TOSYLATE
     Indication: Ischaemic stroke
     Route: 048
     Dates: start: 20221111
  5. EDOXABAN TOSYLATE [Concomitant]
     Active Substance: EDOXABAN TOSYLATE
     Indication: Ischaemic stroke
     Dosage: 60.0MG UNKNOWN
     Route: 065
     Dates: end: 20221024

REACTIONS (1)
  - No adverse event [Unknown]
